FAERS Safety Report 8387821-8 (Version None)
Quarter: 2012Q2

REPORT INFORMATION
  Report Type: 
  Country: None (occurrence: None)
  Receive Date: 20120525
  Receipt Date: 20120406
  Transmission Date: 20120825
  Serious: No
  Sender: FDA-Public Use
  Company Number: US-BRISTOL-MYERS SQUIBB COMPANY-16507543

PATIENT
  Age: 57 Year
  Sex: Female
  Weight: 116 kg

DRUGS (3)
  1. VICTOZA [Concomitant]
  2. GLYBURIDE [Concomitant]
  3. KOMBIGLYZE XR [Suspect]
     Indication: TYPE 2 DIABETES MELLITUS
     Dosage: KOMBIGLYZE XR 5/1000 MG. TABS,DOSE REDUCED:KOMBIGLYZE XR DOSE TO 2.5/1000 MG TWICE DAILY
     Route: 048
     Dates: start: 20120101

REACTIONS (3)
  - DRUG ADMINISTRATION ERROR [None]
  - MEDICATION RESIDUE [None]
  - VOMITING [None]
